FAERS Safety Report 12534770 (Version 2)
Quarter: 2016Q4

REPORT INFORMATION
  Report Type: Spontaneous
  Country: DE (occurrence: DE)
  Receive Date: 20160706
  Receipt Date: 20161103
  Transmission Date: 20170207
  Serious: Yes (Life-Threatening, Hospitalization)
  Sender: FDA-Public Use
  Company Number: DE-MYLANLABS-2016M1027878

PATIENT

DRUGS (5)
  1. BISOPROLOL /HCTZ [Concomitant]
     Indication: HYPERTENSION
     Dosage: 1 DF, UNK (5 MG/ 12.5 MG)
     Route: 048
  2. CITALOPRAM [Suspect]
     Active Substance: CITALOPRAM HYDROBROMIDE
     Indication: DEPRESSION
     Dosage: 10 MG, UNK
     Route: 048
     Dates: start: 20160524
  3. LERCANIDIPINE [Concomitant]
     Active Substance: LERCANIDIPINE
     Indication: HYPERTENSION
     Dosage: 20 MG, UNK
     Route: 048
  4. VANDETANIB. [Suspect]
     Active Substance: VANDETANIB
     Indication: HYPERTENSION
     Dosage: 300 MG, UNK
     Route: 048
  5. EUTHYROX [Concomitant]
     Active Substance: LEVOTHYROXINE SODIUM
     Indication: HYPOTHYROIDISM
     Dosage: 100 ?G, UNK
     Route: 048

REACTIONS (7)
  - Acute kidney injury [Recovering/Resolving]
  - Urinary tract infection [Unknown]
  - Circulatory collapse [Recovering/Resolving]
  - Electrocardiogram QT prolonged [Recovering/Resolving]
  - Hypocalcaemia [Unknown]
  - Decreased appetite [Unknown]
  - Atrioventricular block first degree [Unknown]

NARRATIVE: CASE EVENT DATE: 20160524
